FAERS Safety Report 15451677 (Version 1)
Quarter: 2018Q4

REPORT INFORMATION
  Report Type: Spontaneous
  Country: CZ (occurrence: CZ)
  Receive Date: 20181001
  Receipt Date: 20181001
  Transmission Date: 20190204
  Serious: Yes (Other)
  Sender: FDA-Public Use
  Company Number: CZ-MYLANLABS-2018M1070138

PATIENT
  Age: 27 Year
  Sex: Male

DRUGS (7)
  1. PENICILLAMINE [Suspect]
     Active Substance: PENICILLAMINE
     Indication: CHELATION THERAPY
     Route: 065
  2. ZINC. [Suspect]
     Active Substance: ZINC
     Indication: CHELATION THERAPY
     Route: 065
  3. TRIENTINE [Suspect]
     Active Substance: TRIENTINE
     Dosage: THE DOSE WAS INCREASED TO 1200MG DAILY
     Route: 065
  4. PENICILLAMINE [Suspect]
     Active Substance: PENICILLAMINE
     Dosage: 450 MG, QD/THE DOSE WAS SLOWLY INCREASED TO 450MG DAILY WITHIN 5 MONTHS
     Route: 065
  5. TRIENTINE [Suspect]
     Active Substance: TRIENTINE
     Route: 065
  6. PENICILLAMINE [Suspect]
     Active Substance: PENICILLAMINE
     Dosage: 300 MG, QD/THE DOSE WAS ADJUSTED TO 300MG DAILY
     Route: 065
  7. TRIENTINE [Suspect]
     Active Substance: TRIENTINE
     Indication: CHELATION THERAPY
     Dosage: INITIAL DOSAGE NOT STATED
     Route: 065

REACTIONS (3)
  - Hepato-lenticular degeneration [Recovering/Resolving]
  - Blood iron increased [Unknown]
  - Condition aggravated [Recovering/Resolving]
